FAERS Safety Report 8825236 (Version 1)
Quarter: 2012Q4

REPORT INFORMATION
  Report Type: 
  Country: US (occurrence: US)
  Receive Date: 20121004
  Receipt Date: 20121004
  Transmission Date: 20130627
  Serious: Yes (Death)
  Sender: FDA-Public Use
  Company Number: US-ROCHE-1130164

PATIENT
  Sex: Female

DRUGS (4)
  1. RITUXAN [Suspect]
     Indication: THROMBOCYTOPENIA
     Route: 065
  2. RITUXAN [Suspect]
     Indication: OFF LABEL USE
  3. VINCRISTINE [Concomitant]
  4. CYTOXAN [Concomitant]

REACTIONS (1)
  - Death [Fatal]
